FAERS Safety Report 9117385 (Version 1)
Quarter: 2013Q1

REPORT INFORMATION
  Report Type: Report from Study
  Country: US (occurrence: US)
  Receive Date: 20130129
  Receipt Date: 20130129
  Transmission Date: 20140127
  Serious: No
  Sender: FDA-Public Use
  Company Number: US-ABBOTT-12P-163-0941980-00

PATIENT
  Age: 47 Year
  Sex: Female

DRUGS (4)
  1. HUMIRA 40 MG/0.8 ML PEN [Suspect]
     Indication: CROHN^S DISEASE
     Dates: start: 201202
  2. METOPROLOL [Concomitant]
     Indication: BLOOD PRESSURE
     Dosage: 50MG EVERY DAY
  3. CITALOPRAM [Concomitant]
     Indication: AFFECTIVE DISORDER
     Dosage: 20MG EVERY DAY
  4. LIALDA [Concomitant]
     Indication: CROHN^S DISEASE
     Dosage: 4.8GM EVERY DAY

REACTIONS (2)
  - Nodule [Not Recovered/Not Resolved]
  - Alopecia [Not Recovered/Not Resolved]
